FAERS Safety Report 17482843 (Version 1)
Quarter: 2020Q1

REPORT INFORMATION
  Report Type: Spontaneous
  Country: US (occurrence: US)
  Receive Date: 20191028
  Receipt Date: 20191028
  Transmission Date: 20200409
  Serious: No
  Sender: FDA-Public Use
  Company Number: None

PATIENT
  Age: 18 Year
  Sex: Male

DRUGS (6)
  1. VITAMIN C [Concomitant]
     Active Substance: ASCORBIC ACID
  2. FLAIR (DEVICE\NICOTINE) [Suspect]
     Active Substance: DEVICE\NICOTINE
  3. THC VAPES DANK/VENOM/COOKIES/SMART KART/CALI PLUD [CANNABIDIOL\.DELTA.8-TETRAHYDROCANNABINOL\DEVICE\HERBALS] [Suspect]
     Active Substance: CANNABIDIOL\.DELTA.8-TETRAHYDROCANNABINOL\DEVICE\HERBALS
  4. MAGNESIUM [Concomitant]
     Active Substance: MAGNESIUM
  5. JUUL (DEVICE\NICOTINE) [Suspect]
     Active Substance: DEVICE\NICOTINE
  6. PROBIOTIC [Concomitant]
     Active Substance: PROBIOTICS NOS

REACTIONS (11)
  - Abdominal pain upper [None]
  - Dyspnoea [None]
  - Headache [None]
  - Diarrhoea [None]
  - Rhinorrhoea [None]
  - Nausea [None]
  - Cough [None]
  - Vomiting [None]
  - Pyrexia [None]
  - Decreased appetite [None]
  - Abdominal pain [None]
